FAERS Safety Report 20054565 (Version 28)
Quarter: 2023Q2

REPORT INFORMATION
  Report Type: Report from Study
  Country: AR (occurrence: AR)
  Receive Date: 20211110
  Receipt Date: 20230608
  Transmission Date: 20230721
  Serious: Yes (Hospitalization, Other)
  Sender: FDA-Public Use
  Company Number: AR-TAKEDA-2021TUS029346

PATIENT
  Age: 19 Year
  Sex: Male
  Weight: 51.7 kg

DRUGS (13)
  1. IDURSULFASE [Suspect]
     Active Substance: IDURSULFASE
     Indication: Mucopolysaccharidosis II
     Dosage: 30 MILLIGRAM, 1/WEEK
     Route: 050
     Dates: start: 20050521
  2. IDURSULFASE [Suspect]
     Active Substance: IDURSULFASE
     Indication: Supplementation therapy
     Dosage: 6 MILLIGRAM, 1/WEEK
     Route: 050
     Dates: start: 20070507
  3. IDURSULFASE [Suspect]
     Active Substance: IDURSULFASE
     Dosage: 4 DOSAGE FORM, 1/WEEK
     Route: 042
  4. IDURSULFASE [Suspect]
     Active Substance: IDURSULFASE
     Dosage: 4 DOSAGE FORM, 1/WEEK
     Route: 042
  5. IDURSULFASE [Suspect]
     Active Substance: IDURSULFASE
     Dosage: 30 MILLIGRAM, 1/WEEK
     Route: 042
  6. IDURSULFASE [Suspect]
     Active Substance: IDURSULFASE
     Dosage: 4 DOSAGE FORM, 1/WEEK
     Route: 042
  7. IDURSULFASE [Suspect]
     Active Substance: IDURSULFASE
     Dosage: UNK UNK, 1/WEEK
     Route: 042
  8. IDURSULFASE [Suspect]
     Active Substance: IDURSULFASE
     Dosage: 4 DOSAGE FORM, 1/WEEK
     Route: 042
  9. IDURSULFASE [Suspect]
     Active Substance: IDURSULFASE
     Dosage: 24 MILLIGRAM, 1/WEEK
     Route: 042
  10. IDURSULFASE [Suspect]
     Active Substance: IDURSULFASE
     Dosage: 4 DOSAGE FORM
     Route: 042
     Dates: start: 20150521
  11. IDURSULFASE [Suspect]
     Active Substance: IDURSULFASE
     Dosage: 5 DOSAGE FORM, 1/WEEK
     Route: 042
  12. DEXMEDETOMIDINE [Suspect]
     Active Substance: DEXMEDETOMIDINE
     Indication: Product used for unknown indication
     Dosage: UNK
     Route: 065
  13. Covid-19 vaccine [Concomitant]
     Dosage: UNK
     Route: 065

REACTIONS (30)
  - Angina pectoris [Unknown]
  - Device related infection [Recovered/Resolved]
  - Aspiration [Unknown]
  - Pneumonia bacterial [Not Recovered/Not Resolved]
  - Respiratory disorder [Recovered/Resolved]
  - Meningeal disorder [Unknown]
  - Puncture site cellulitis [Recovering/Resolving]
  - Pyrexia [Recovered/Resolved]
  - Viral upper respiratory tract infection [Unknown]
  - Nervousness [Unknown]
  - Oral herpes [Unknown]
  - Poor venous access [Unknown]
  - Tachycardia [Unknown]
  - Ear pain [Not Recovered/Not Resolved]
  - Fall [Recovered/Resolved]
  - Face injury [Recovered/Resolved]
  - Tooth injury [Recovered/Resolved]
  - Swelling [Recovering/Resolving]
  - Restlessness [Recovered/Resolved]
  - Constipation [Recovering/Resolving]
  - Dental discomfort [Recovering/Resolving]
  - Rhinorrhoea [Recovered/Resolved]
  - Somnolence [Recovered/Resolved]
  - Sleep disorder [Recovered/Resolved]
  - Dehydration [Unknown]
  - Blood pressure decreased [Unknown]
  - Discouragement [Unknown]
  - Hypertonia [Unknown]
  - Ear infection [Recovering/Resolving]
  - Rash [Recovered/Resolved]

NARRATIVE: CASE EVENT DATE: 20210330
